FAERS Safety Report 22600517 (Version 2)
Quarter: 2023Q2

REPORT INFORMATION
  Report Type: Spontaneous
  Country: US (occurrence: US)
  Receive Date: 20230614
  Receipt Date: 20230616
  Transmission Date: 20230721
  Serious: Yes (Other)
  Sender: FDA-Public Use
  Company Number: US-ABBVIE-5288239

PATIENT
  Sex: Female

DRUGS (2)
  1. REFRESH CELLUVISC [Suspect]
     Active Substance: CARBOXYMETHYLCELLULOSE SODIUM
     Indication: Product used for unknown indication
  2. REFRESH OPTIVE [Suspect]
     Active Substance: CARBOXYMETHYLCELLULOSE SODIUM\GLYCERIN
     Indication: Product used for unknown indication

REACTIONS (5)
  - Eye laser surgery [Unknown]
  - Eye pruritus [Unknown]
  - Eye disorder [Unknown]
  - Therapeutic product effect decreased [Unknown]
  - Intraocular pressure increased [Unknown]
